FAERS Safety Report 16285856 (Version 6)
Quarter: 2019Q3

REPORT INFORMATION
  Report Type: Spontaneous
  Country: IT (occurrence: IT)
  Receive Date: 20190508
  Receipt Date: 20190904
  Transmission Date: 20191004
  Serious: Yes (Other)
  Sender: FDA-Public Use
  Company Number: IT-ELI_LILLY_AND_COMPANY-IT201904014258

PATIENT
  Age: 20 Year
  Sex: Male

DRUGS (12)
  1. ANAFRANIL [Suspect]
     Active Substance: CLOMIPRAMINE HYDROCHLORIDE
     Indication: BORDERLINE PERSONALITY DISORDER
     Dosage: UNK, UNKNOWN
     Route: 065
  2. RIVOTRIL [Suspect]
     Active Substance: CLONAZEPAM
     Indication: BORDERLINE PERSONALITY DISORDER
     Dosage: UNK, UNKNOWN
     Route: 065
  3. LAMICTAL [Suspect]
     Active Substance: LAMOTRIGINE
     Indication: OBSESSIVE THOUGHTS
     Dosage: UNK, UNKNOWN
     Route: 065
  4. LAMICTAL [Suspect]
     Active Substance: LAMOTRIGINE
     Indication: BORDERLINE PERSONALITY DISORDER
  5. OLANZAPINE. [Suspect]
     Active Substance: OLANZAPINE
     Indication: PSYCHOTIC DISORDER
     Dosage: UNK UNK, UNKNOWN
     Route: 065
  6. SEROQUEL [Suspect]
     Active Substance: QUETIAPINE FUMARATE
     Indication: OBSESSIVE THOUGHTS
  7. RIVOTRIL [Suspect]
     Active Substance: CLONAZEPAM
     Indication: OBSESSIVE THOUGHTS
  8. ENTUMIN [Suspect]
     Active Substance: CLOTHIAPINE
     Indication: OBSESSIVE THOUGHTS
     Dosage: UNK, UNKNOWN
     Route: 065
  9. SEROQUEL [Suspect]
     Active Substance: QUETIAPINE FUMARATE
     Indication: BORDERLINE PERSONALITY DISORDER
     Dosage: UNK, UNKNOWN
     Route: 065
  10. LATUDA [Suspect]
     Active Substance: LURASIDONE HYDROCHLORIDE
     Indication: BORDERLINE PERSONALITY DISORDER
  11. FLUOXETINE HYDROCHLORIDE. [Suspect]
     Active Substance: FLUOXETINE HYDROCHLORIDE
     Indication: OBSESSIVE THOUGHTS
     Dosage: UNK, UNKNOWN
     Route: 065
  12. LATUDA [Suspect]
     Active Substance: LURASIDONE HYDROCHLORIDE
     Indication: PSYCHOTIC DISORDER
     Dosage: UNK, UNKNOWN
     Route: 048

REACTIONS (6)
  - Nervousness [Not Recovered/Not Resolved]
  - Depersonalisation/derealisation disorder [Unknown]
  - Flat affect [Unknown]
  - Derealisation [Unknown]
  - Obsessive thoughts [Not Recovered/Not Resolved]
  - Mood swings [Unknown]
